FAERS Safety Report 6742437-1 (Version None)
Quarter: 2010Q2

REPORT INFORMATION
  Report Type: 
  Country: None (occurrence: None)
  Receive Date: 20100526
  Receipt Date: 20091103
  Transmission Date: 20101027
  Serious: No
  Sender: FDA-Public Use
  Company Number: US-SANOFI-AVENTIS-200917728US

PATIENT
  Sex: Male
  Weight: 75 kg

DRUGS (8)
  1. GLIBENCLAMIDE [Suspect]
     Dosage: DOSE AS USED: UNKNOWN
     Dates: start: 20030101, end: 20070101
  2. GLIBENCLAMIDE [Suspect]
     Route: 048
     Dates: start: 20071101
  3. INSULIN [Suspect]
     Dosage: DOSE AS USED
     Dates: start: 20050101, end: 20070101
  4. METFORMIN HYDROCHLORIDE [Suspect]
     Route: 048
     Dates: start: 20070101
  5. PREDNISONE TAB [Suspect]
     Indication: PSORIASIS
     Dosage: DOSE AS USED: UNK
     Route: 065
     Dates: start: 20050101
  6. CLONIDINE [Concomitant]
     Dates: start: 20070101
  7. HYDROCHLOROTHIAZIDE [Concomitant]
     Dates: start: 20090606
  8. ENALAPRIL [Concomitant]
     Dates: start: 20060101

REACTIONS (6)
  - BLOOD GLUCOSE INCREASED [None]
  - ERYTHEMA [None]
  - GLUCOSE URINE PRESENT [None]
  - OEDEMA PERIPHERAL [None]
  - PSORIASIS [None]
  - WEIGHT DECREASED [None]
